FAERS Safety Report 9133162 (Version 1)
Quarter: 2013Q1

REPORT INFORMATION
  Report Type: Spontaneous
  Country: US (occurrence: US)
  Receive Date: 20130116
  Receipt Date: 20130116
  Transmission Date: 20140127
  Serious: No
  Sender: FDA-Public Use
  Company Number: US-009507513-1301USA004731

PATIENT
  Age: 10 Year
  Sex: Male

DRUGS (3)
  1. CLARINEX [Suspect]
     Indication: SEASONAL ALLERGY
     Dosage: 2.5 MG, BID
     Route: 048
  2. CLARINEX [Suspect]
     Indication: SEASONAL ALLERGY
     Route: 048
  3. CLARINEX [Suspect]
     Indication: SEASONAL ALLERGY
     Dosage: 5 MG, QD
     Route: 048

REACTIONS (2)
  - Dysphagia [Unknown]
  - Product taste abnormal [Unknown]
